FAERS Safety Report 6549401-6 (Version None)
Quarter: 2010Q1

REPORT INFORMATION
  Report Type: 
  Country: None (occurrence: None)
  Receive Date: 20100125
  Receipt Date: 20100121
  Transmission Date: 20100710
  Serious: Yes (Death)
  Sender: FDA-Public Use
  Company Number: PHEH2009US15831

PATIENT
  Sex: Male

DRUGS (1)
  1. EXJADE [Suspect]
     Dosage: 2000 MG/DAILY
     Route: 048

REACTIONS (3)
  - DISEASE PROGRESSION [None]
  - LYMPHOMA [None]
  - MYELODYSPLASTIC SYNDROME [None]
